FAERS Safety Report 9262777 (Version 4)
Quarter: 2013Q3

REPORT INFORMATION
  Report Type: Spontaneous
  Country: SE (occurrence: SE)
  Receive Date: 20130430
  Receipt Date: 20130711
  Transmission Date: 20140515
  Serious: Yes (Other)
  Sender: FDA-Public Use
  Company Number: SE-JNJFOC-20130411261

PATIENT
  Age: 42 Year
  Sex: Female
  Weight: 98 kg

DRUGS (7)
  1. STELARA [Suspect]
     Indication: PSORIASIS
     Route: 058
     Dates: end: 20130115
  2. STELARA [Suspect]
     Indication: PSORIASIS
     Route: 058
     Dates: start: 20121116
  3. STELARA [Suspect]
     Indication: PSORIASIS
     Route: 058
     Dates: start: 20130405, end: 20130405
  4. STELARA [Suspect]
     Indication: PSORIASIS
     Route: 058
     Dates: start: 201212
  5. LEVAXIN [Concomitant]
     Indication: PRODUCT USED FOR UNKNOWN INDICATION
     Route: 048
  6. BRICANYL [Concomitant]
     Indication: PRODUCT USED FOR UNKNOWN INDICATION
     Route: 055
  7. PULMICORT [Concomitant]
     Indication: PRODUCT USED FOR UNKNOWN INDICATION
     Route: 055

REACTIONS (7)
  - Myalgia [Unknown]
  - Myositis [Unknown]
  - Dysgeusia [Unknown]
  - General physical condition abnormal [Unknown]
  - Fatigue [Unknown]
  - Lethargy [Unknown]
  - Weight decreased [Unknown]
